FAERS Safety Report 14406914 (Version 3)
Quarter: 2018Q1

REPORT INFORMATION
  Report Type: Report from Study
  Country: BG (occurrence: BG)
  Receive Date: 20180118
  Receipt Date: 20180228
  Transmission Date: 20180509
  Serious: Yes (Hospitalization)
  Sender: FDA-Public Use
  Company Number: BG-PFIZER INC-2018019860

PATIENT
  Age: 78 Year
  Sex: Female

DRUGS (6)
  1. RESOCHIN [Concomitant]
     Active Substance: NIFEDIPINE
     Dosage: UNK
     Route: 065
     Dates: start: 201604
  2. FOLIC ACID. [Concomitant]
     Active Substance: FOLIC ACID
     Dosage: UNK
     Dates: start: 20171123, end: 20171221
  3. FILGOTINIB [Suspect]
     Active Substance: FILGOTINIB
     Dosage: 200 MG, 1X/DAY
     Route: 048
     Dates: start: 20171217, end: 20171220
  4. METHOTREXATE SODIUM. [Suspect]
     Active Substance: METHOTREXATE SODIUM
     Indication: RHEUMATOID ARTHRITIS
     Dosage: 10 MG, WEEKLY (1 IN 1 W)
     Dates: start: 20171124, end: 20171208
  5. FILGOTINIB [Suspect]
     Active Substance: FILGOTINIB
     Indication: RHEUMATOID ARTHRITIS
     Dosage: 200 MG, 1X/DAY
     Route: 048
     Dates: start: 20171123, end: 20171213
  6. OMEPRAZOLE. [Concomitant]
     Active Substance: OMEPRAZOLE
     Dosage: UNK
     Route: 065
     Dates: start: 20171124

REACTIONS (1)
  - Megacolon [Recovered/Resolved]

NARRATIVE: CASE EVENT DATE: 20171213
